FAERS Safety Report 16012850 (Version 3)
Quarter: 2019Q3

REPORT INFORMATION
  Report Type: Spontaneous
  Country: US (occurrence: US)
  Receive Date: 20190227
  Receipt Date: 20190823
  Transmission Date: 20191004
  Serious: Yes (Other)
  Sender: FDA-Public Use
  Company Number: US-BRISTOL-MYERS SQUIBB COMPANY-BMS-2019-019260

PATIENT
  Sex: Male

DRUGS (1)
  1. SPRYCEL [Suspect]
     Active Substance: DASATINIB
     Indication: CHRONIC MYELOID LEUKAEMIA
     Dosage: 140 MG, QD
     Route: 048
     Dates: start: 20181231

REACTIONS (16)
  - Dyspnoea exertional [Unknown]
  - Pruritus [Unknown]
  - Decreased appetite [Unknown]
  - Pain in extremity [Unknown]
  - Haematochezia [Unknown]
  - Orthopnoea [Unknown]
  - Haematocrit decreased [Unknown]
  - Poor quality sleep [Unknown]
  - Pleural effusion [Unknown]
  - Cough [Unknown]
  - Arthralgia [Unknown]
  - Myalgia [Unknown]
  - Bowel movement irregularity [Unknown]
  - Asthenia [Unknown]
  - Blister [Unknown]
  - Haemorrhoids [Unknown]
